FAERS Safety Report 24231691 (Version 2)
Quarter: 2025Q1

REPORT INFORMATION
  Report Type: Spontaneous
  Country: US (occurrence: US)
  Receive Date: 20240821
  Receipt Date: 20250211
  Transmission Date: 20250409
  Serious: No
  Sender: ABBVIE
  Company Number: US-ABBVIE-5882238

PATIENT

DRUGS (1)
  1. UBRELVY [Suspect]
     Active Substance: UBROGEPANT
     Indication: Product used for unknown indication
     Route: 048
     Dates: start: 202501

REACTIONS (7)
  - Musculoskeletal stiffness [Unknown]
  - Headache [Unknown]
  - Adverse drug reaction [Unknown]
  - Yawning [Unknown]
  - Lethargy [Unknown]
  - Food craving [Unknown]
  - Joint noise [Unknown]

NARRATIVE: CASE EVENT DATE: 20240801
